FAERS Safety Report 9807642 (Version 1)
Quarter: 2014Q1

REPORT INFORMATION
  Report Type: Report from Study
  Country: LB (occurrence: LB)
  Receive Date: 20140110
  Receipt Date: 20140110
  Transmission Date: 20141002
  Serious: Yes (Hospitalization)
  Sender: FDA-Public Use
  Company Number: LB-SA-2014SA001704

PATIENT
  Age: 71 Year
  Sex: Male

DRUGS (7)
  1. LANTUS SOLOSTAR [Suspect]
     Indication: DIABETES MELLITUS
     Dosage: DOSE:30 UNIT(S)
     Route: 058
     Dates: start: 201307
  2. SIOFOR [Concomitant]
     Indication: DIABETES MELLITUS
     Route: 048
  3. CONCOR [Concomitant]
     Route: 048
  4. LISOPRESS [Concomitant]
     Route: 048
  5. TANAKAN [Concomitant]
     Route: 048
  6. LASIX [Concomitant]
     Route: 048
  7. ASPICOT [Concomitant]
     Route: 048

REACTIONS (5)
  - Influenza like illness [Recovered/Resolved]
  - Fatigue [Recovered/Resolved]
  - Vertigo [Recovered/Resolved]
  - Asthenia [Recovered/Resolved]
  - Oxygen saturation decreased [Recovered/Resolved]
